FAERS Safety Report 5919957-2 (Version None)
Quarter: 2008Q4

REPORT INFORMATION
  Report Type: 
  Country: None (occurrence: None)
  Receive Date: 20081015
  Receipt Date: 20081010
  Transmission Date: 20090506
  Serious: Yes (Life-Threatening)
  Sender: FDA-Public Use
  Company Number: JP-GENENTECH-267055

PATIENT
  Sex: Male

DRUGS (7)
  1. ACTIVASE [Suspect]
     Indication: CEREBRAL INFARCTION
     Dosage: 1800 MIU, QD
     Route: 042
     Dates: start: 20080816, end: 20080816
  2. RADICUT [Suspect]
     Indication: CEREBRAL INFARCTION
     Dosage: 30 MIU, QD
     Route: 042
     Dates: start: 20080816, end: 20080816
  3. ALTAT [Concomitant]
     Indication: DRUG USE FOR UNKNOWN INDICATION
     Dosage: 75 MG, BID
     Route: 042
     Dates: start: 20080816
  4. AMPICILLIN SODIUM/SULBACTAM SODIUM [Concomitant]
     Indication: DRUG USE FOR UNKNOWN INDICATION
     Dosage: 3 G, QD
     Route: 042
     Dates: start: 20080816
  5. MEROPEN (JAPAN) [Concomitant]
     Indication: DRUG USE FOR UNKNOWN INDICATION
     Dosage: UNK
     Dates: start: 20080816
  6. VITAMEDIN [Concomitant]
     Indication: DRUG USE FOR UNKNOWN INDICATION
     Dosage: 1 DF, QD
     Route: 042
     Dates: start: 20080816
  7. LENOGRASTIM [Concomitant]
     Indication: DRUG USE FOR UNKNOWN INDICATION
     Dosage: UNK
     Dates: start: 20080816

REACTIONS (2)
  - AGRANULOCYTOSIS [None]
  - DRUG INEFFECTIVE [None]
